FAERS Safety Report 25539599 (Version 1)
Quarter: 2025Q3

REPORT INFORMATION
  Report Type: Spontaneous
  Country: EU (occurrence: EU)
  Receive Date: 20250710
  Receipt Date: 20250710
  Transmission Date: 20251021
  Serious: Yes (Other)
  Sender: Kenvue
  Company Number: EU-KENVUE-20250700496

PATIENT

DRUGS (2)
  1. LOPERAMIDE HYDROCHLORIDE [Interacting]
     Active Substance: LOPERAMIDE HYDROCHLORIDE
     Indication: Diarrhoea
     Route: 065
  2. DROTAVERINE [Interacting]
     Active Substance: DROTAVERINE
     Indication: Abdominal pain
     Route: 065

REACTIONS (2)
  - Drug interaction [Unknown]
  - Ileus [Recovering/Resolving]
